FAERS Safety Report 7468481-7 (Version None)
Quarter: 2011Q2

REPORT INFORMATION
  Report Type: 
  Country: None (occurrence: None)
  Receive Date: 20110509
  Receipt Date: 20110503
  Transmission Date: 20111010
  Serious: Yes (Hospitalization)
  Sender: FDA-Public Use
  Company Number: US-GILEAD-2011-0035637

PATIENT
  Sex: Male

DRUGS (2)
  1. LETAIRIS [Suspect]
     Indication: OBESITY
  2. LETAIRIS [Suspect]
     Indication: PULMONARY ARTERIAL HYPERTENSION
     Route: 048
     Dates: start: 20090302

REACTIONS (2)
  - PULMONARY HAEMORRHAGE [None]
  - UNEVALUABLE EVENT [None]
